FAERS Safety Report 5710451-0 (Version None)
Quarter: 2008Q2

REPORT INFORMATION
  Report Type: 
  Country: None (occurrence: None)
  Receive Date: 20080418
  Receipt Date: 20080407
  Transmission Date: 20081010
  Serious: Yes (Other)
  Sender: FDA-Public Use
  Company Number: US-PFIZER INC-2008033186

PATIENT
  Sex: Female
  Weight: 68.2 kg

DRUGS (3)
  1. CHANTIX [Suspect]
     Indication: SMOKING CESSATION THERAPY
  2. CAFFEINE CITRATE [Suspect]
  3. LEXAPRO [Concomitant]

REACTIONS (2)
  - NAUSEA [None]
  - VISUAL ACUITY REDUCED [None]
